FAERS Safety Report 9708586 (Version 1)
Quarter: 2013Q4

REPORT INFORMATION
  Report Type: Report from Study
  Country: CL (occurrence: CL)
  Receive Date: 20131125
  Receipt Date: 20131125
  Transmission Date: 20140711
  Serious: Yes (Hospitalization)
  Sender: FDA-Public Use
  Company Number: PHHY2013CL135099

PATIENT
  Sex: 0

DRUGS (1)
  1. TAREG D [Suspect]

REACTIONS (1)
  - General physical health deterioration [Unknown]
